FAERS Safety Report 22027908 (Version 3)
Quarter: 2023Q1

REPORT INFORMATION
  Report Type: Report from Study
  Country: US (occurrence: None)
  Receive Date: 20230223
  Receipt Date: 20230313
  Transmission Date: 20230418
  Serious: Yes (Hospitalization)
  Sender: FDA-Public Use
  Company Number: US-ROCHE-3109459

PATIENT
  Age: 68 Year
  Sex: Male
  Weight: 100.9 kg

DRUGS (22)
  1. COBIMETINIB [Suspect]
     Active Substance: COBIMETINIB
     Indication: Malignant melanoma
     Dosage: ON 08/DEC/2021, HE RECEIVED MOST RECENT DOSE OF STUDY DRUG PRIOR SAE.
     Route: 048
     Dates: start: 20211123
  2. MINOCYCLINE [Concomitant]
     Active Substance: MINOCYCLINE HYDROCHLORIDE
     Indication: Rash macular
     Route: 048
     Dates: start: 20211202
  3. TRIAMCINOLONE [Concomitant]
     Active Substance: TRIAMCINOLONE
     Indication: Rash macular
     Route: 061
     Dates: start: 20211202, end: 20220713
  4. METOPROLOL [Concomitant]
     Active Substance: METOPROLOL
     Indication: Atrial fibrillation
     Route: 048
     Dates: start: 20220114
  5. ASPIRIN [Concomitant]
     Active Substance: ASPIRIN
     Indication: Atrial fibrillation
     Route: 048
     Dates: start: 20220114
  6. ASPIRIN [Concomitant]
     Active Substance: ASPIRIN
     Dosage: DOSE - 81 BOTTLE
     Route: 048
     Dates: start: 2016, end: 20220713
  7. XARELTO [Concomitant]
     Active Substance: RIVAROXABAN
     Indication: Atrial fibrillation
     Route: 048
     Dates: start: 20220118
  8. CLINDAMYCIN [Concomitant]
     Active Substance: CLINDAMYCIN
     Indication: Rash pustular
     Route: 061
     Dates: start: 20220209
  9. LOPRESSOR [Concomitant]
     Active Substance: METOPROLOL TARTRATE
     Indication: Atrial fibrillation
     Route: 048
     Dates: start: 20220531, end: 20220713
  10. DYAZIDE [Concomitant]
     Active Substance: HYDROCHLOROTHIAZIDE\TRIAMTERENE
     Indication: Hypertension
     Dosage: DOSE - 1 BOTTLE
     Route: 048
     Dates: start: 2019, end: 20220713
  11. TUMS [Concomitant]
     Active Substance: CALCIUM CARBONATE
     Indication: Gastrooesophageal reflux disease
     Dosage: 3 BOTTLE
     Route: 048
     Dates: start: 20211123, end: 20220713
  12. PURE BAKING SODA [Concomitant]
     Active Substance: SODIUM BICARBONATE
     Indication: Gastrooesophageal reflux disease
     Dosage: DOSE - 0.5 TABLET
     Route: 048
     Dates: start: 20211125, end: 20220713
  13. CLOBETASOL PROPIONATE [Concomitant]
     Active Substance: CLOBETASOL PROPIONATE
     Indication: Rash pustular
     Route: 061
     Dates: start: 20220209
  14. CLOBETASOL PROPIONATE [Concomitant]
     Active Substance: CLOBETASOL PROPIONATE
     Indication: Pruritus
     Route: 061
     Dates: start: 20220209
  15. AMLODIPINE [Concomitant]
     Active Substance: AMLODIPINE BESYLATE
     Indication: Hypertension
     Dosage: DOSE: 5 BOTTLE
     Route: 048
     Dates: start: 2010
  16. LOTENSIN [Concomitant]
     Active Substance: BENAZEPRIL HYDROCHLORIDE
     Indication: Hypertension
     Dosage: DOSE: 20 BOTTLE
     Route: 048
     Dates: start: 2011, end: 20220713
  17. RIVAROXABAN [Concomitant]
     Active Substance: RIVAROXABAN
     Route: 048
  18. MAXZIDE [Concomitant]
     Active Substance: HYDROCHLOROTHIAZIDE\TRIAMTERENE
     Route: 048
  19. NORVASC [Concomitant]
     Active Substance: AMLODIPINE BESYLATE
     Route: 048
  20. LOPRESSOR [Concomitant]
     Active Substance: METOPROLOL TARTRATE
     Indication: Atrial fibrillation
     Route: 048
     Dates: start: 20220531
  21. PRILOSEC [Concomitant]
     Active Substance: OMEPRAZOLE MAGNESIUM
     Indication: Gastrooesophageal reflux disease
     Route: 048
  22. PEPTO-BISMOL [Concomitant]
     Active Substance: BISMUTH SUBSALICYLATE
     Indication: Gastrooesophageal reflux disease
     Route: 048
     Dates: start: 20211130, end: 20220713

REACTIONS (1)
  - Chest pain [Recovered/Resolved]

NARRATIVE: CASE EVENT DATE: 20220607
